FAERS Safety Report 8587026-1 (Version None)
Quarter: 2012Q3

REPORT INFORMATION
  Report Type: 
  Country: None (occurrence: None)
  Receive Date: 20120810
  Receipt Date: 20120628
  Transmission Date: 20120928
  Serious: No
  Sender: FDA-Public Use
  Company Number: US-ASTRAZENECA-2012SE44993

PATIENT
  Sex: Female

DRUGS (1)
  1. TOPROL-XL [Suspect]
     Route: 048

REACTIONS (6)
  - HYPERTENSION [None]
  - OSTEOPOROSIS [None]
  - DRUG INEFFECTIVE [None]
  - MIGRAINE [None]
  - INTENTIONAL DRUG MISUSE [None]
  - INSOMNIA [None]
